FAERS Safety Report 6322082-2 (Version None)
Quarter: 2009Q3

REPORT INFORMATION
  Report Type: 
  Country: None (occurrence: None)
  Receive Date: 20090824
  Receipt Date: 20090817
  Transmission Date: 20100115
  Serious: Yes (Hospitalization)
  Sender: FDA-Public Use
  Company Number: FR-JNJFOC-20090805140

PATIENT
  Age: 55 Year
  Sex: Male

DRUGS (10)
  1. TAVANIC [Suspect]
     Indication: LUNG DISORDER
     Route: 042
  2. SUFENTANIL [Suspect]
     Indication: SEDATION
     Route: 065
  3. AUGMENTIN [Suspect]
     Indication: LUNG DISORDER
     Route: 042
  4. HYPNOVEL [Suspect]
     Indication: SEDATION
     Route: 065
  5. INEXIUM [Concomitant]
     Route: 042
  6. CALCIPARINE [Concomitant]
     Route: 058
  7. ZANIDIP [Concomitant]
     Route: 048
  8. RILMENIDINE [Concomitant]
     Route: 048
  9. NICARDIPINE HCL [Concomitant]
     Route: 042
  10. INSULIN [Concomitant]
     Route: 065

REACTIONS (1)
  - DELAYED RECOVERY FROM ANAESTHESIA [None]
